FAERS Safety Report 6905634-8 (Version None)
Quarter: 2010Q3

REPORT INFORMATION
  Report Type: 
  Country: None (occurrence: None)
  Receive Date: 20100802
  Receipt Date: 20100722
  Transmission Date: 20110219
  Serious: Yes (Hospitalization, Other)
  Sender: FDA-Public Use
  Company Number: 2010US002861

PATIENT
  Age: 31 Year
  Sex: Female
  Weight: 44 kg

DRUGS (1)
  1. PROGRAF [Suspect]
     Indication: RENAL TRANSPLANT
     Dosage: 1 MG, BID, ORAL; 5 MG, BID, ORAL
     Route: 048

REACTIONS (8)
  - DRUG LEVEL FLUCTUATING [None]
  - HOT FLUSH [None]
  - HYSTERECTOMY [None]
  - KIDNEY TRANSPLANT REJECTION [None]
  - PAIN IN EXTREMITY [None]
  - THROMBOTIC MICROANGIOPATHY [None]
  - TRANSPLANT FAILURE [None]
  - TREATMENT NONCOMPLIANCE [None]
